FAERS Safety Report 11174548 (Version 2)
Quarter: 2015Q2

REPORT INFORMATION
  Report Type: Spontaneous
  Country: IL (occurrence: IL)
  Receive Date: 20150609
  Receipt Date: 20150615
  Transmission Date: 20150821
  Serious: Yes (Disabling, Other)
  Sender: FDA-Public Use
  Company Number: IL-PFIZER INC-2015189915

PATIENT
  Age: 4 Decade
  Sex: Female

DRUGS (1)
  1. GEODON [Suspect]
     Active Substance: ZIPRASIDONE HYDROCHLORIDE\ZIPRASIDONE MESYLATE
     Dosage: UNK
     Dates: start: 2009

REACTIONS (2)
  - Myelitis transverse [Unknown]
  - Diplegia [Unknown]

NARRATIVE: CASE EVENT DATE: 2014
